FAERS Safety Report 13194765 (Version 1)
Quarter: 2017Q1

REPORT INFORMATION
  Report Type: Spontaneous
  Country: US (occurrence: US)
  Receive Date: 20170207
  Receipt Date: 20170207
  Transmission Date: 20170428
  Serious: No
  Sender: FDA-Public Use
  Company Number: US-JAZZ-2016-US-020670

PATIENT
  Age: 57 Year
  Sex: Male

DRUGS (1)
  1. PRIALT [Suspect]
     Active Substance: ZICONOTIDE ACETATE
     Indication: PAIN
     Dosage: 0.183 ?G, QH
     Route: 037

REACTIONS (4)
  - Incision site infection [Unknown]
  - Implant site discharge [Unknown]
  - Medical device site swelling [Unknown]
  - Incision site complication [Unknown]

NARRATIVE: CASE EVENT DATE: 20160810
